FAERS Safety Report 20353240 (Version 2)
Quarter: 2022Q4

REPORT INFORMATION
  Report Type: Spontaneous
  Country: US (occurrence: US)
  Receive Date: 20220119
  Receipt Date: 20221007
  Transmission Date: 20230112
  Serious: Yes (Hospitalization, Other)
  Sender: FDA-Public Use
  Company Number: US-GILEAD-2022-0565864

PATIENT
  Sex: Male
  Weight: 48.98 kg

DRUGS (38)
  1. VIREAD [Suspect]
     Active Substance: TENOFOVIR DISOPROXIL FUMARATE
     Indication: HIV infection
     Dosage: UNK
     Route: 048
     Dates: start: 2010
  2. VIREAD [Suspect]
     Active Substance: TENOFOVIR DISOPROXIL FUMARATE
     Dosage: UNK
     Route: 048
     Dates: start: 2003, end: 2010
  3. ATRIPLA [Suspect]
     Active Substance: EFAVIRENZ\EMTRICITABINE\TENOFOVIR DISOPROXIL FUMARATE
     Indication: HIV infection
     Dosage: UNK
     Route: 048
     Dates: start: 2010, end: 2012
  4. TRUVADA [Suspect]
     Active Substance: EMTRICITABINE\TENOFOVIR DISOPROXIL FUMARATE
     Indication: HIV infection
     Dosage: UNK
     Route: 048
     Dates: start: 2010
  5. TRUVADA [Suspect]
     Active Substance: EMTRICITABINE\TENOFOVIR DISOPROXIL FUMARATE
     Dosage: UNK
     Route: 048
     Dates: start: 2012, end: 2014
  6. COMBIVIR [Concomitant]
     Active Substance: LAMIVUDINE\ZIDOVUDINE
  7. EPIVIR [Concomitant]
     Active Substance: LAMIVUDINE
  8. NORVIR [Concomitant]
     Active Substance: RITONAVIR
  9. RETROVIR [Concomitant]
     Active Substance: ZIDOVUDINE
  10. SUSTIVA [Concomitant]
     Active Substance: EFAVIRENZ
  11. TIVICAY [Concomitant]
     Active Substance: DOLUTEGRAVIR SODIUM
  12. ZIAGEN [Concomitant]
     Active Substance: ABACAVIR SULFATE
  13. ZERIT [Concomitant]
     Active Substance: STAVUDINE
  14. DILTIAZEM [Concomitant]
     Active Substance: DILTIAZEM
  15. CLONIDINE [Concomitant]
     Active Substance: CLONIDINE
  16. HYDRALAZINE [Concomitant]
     Active Substance: HYDRALAZINE HYDROCHLORIDE
  17. DOXAZOSIN [Concomitant]
     Active Substance: DOXAZOSIN MESYLATE
  18. TAMSULOSIN [Concomitant]
     Active Substance: TAMSULOSIN
  19. LEVALBUTEROL HYDROCHLORIDE [Concomitant]
     Active Substance: LEVALBUTEROL HYDROCHLORIDE
  20. DOCUSATE [Concomitant]
     Active Substance: DOCUSATE
  21. SENNOSIDES [Concomitant]
     Active Substance: SENNOSIDES
  22. FINASTERIDE [Concomitant]
     Active Substance: FINASTERIDE
  23. ATORVASTATIN [Concomitant]
     Active Substance: ATORVASTATIN
  24. CYCLOBENZAPRINE [Concomitant]
     Active Substance: CYCLOBENZAPRINE
  25. OXYCODONE [Concomitant]
     Active Substance: OXYCODONE
  26. MAGNESIUM OXIDE [Concomitant]
     Active Substance: MAGNESIUM OXIDE
  27. MONTELUKAST [Concomitant]
     Active Substance: MONTELUKAST SODIUM
  28. VITAMINS NOS [Concomitant]
     Active Substance: VITAMINS
  29. CALCIUM [Concomitant]
     Active Substance: CALCIUM
  30. ASPIRIN [Concomitant]
     Active Substance: ASPIRIN
  31. VITAMIN D NOS [Concomitant]
     Active Substance: VITAMIN D NOS
  32. VITAMIN C [Concomitant]
     Active Substance: ASCORBIC ACID
  33. FERROUS SULFATE [Concomitant]
     Active Substance: FERROUS SULFATE
  34. SPIRIVA [Concomitant]
     Active Substance: TIOTROPIUM BROMIDE MONOHYDRATE
  35. FISH OIL [Concomitant]
     Active Substance: FISH OIL
  36. DOVATO [Concomitant]
     Active Substance: DOLUTEGRAVIR SODIUM\LAMIVUDINE
  37. EZETIMIBE [Concomitant]
     Active Substance: EZETIMIBE
  38. OMEPRAZOLE [Concomitant]
     Active Substance: OMEPRAZOLE

REACTIONS (14)
  - Chronic kidney disease [Not Recovered/Not Resolved]
  - Renal impairment [Not Recovered/Not Resolved]
  - Renal injury [Not Recovered/Not Resolved]
  - Protein total increased [Unknown]
  - Back pain [Unknown]
  - Pollakiuria [Unknown]
  - Dysstasia [Not Recovered/Not Resolved]
  - Gait disturbance [Not Recovered/Not Resolved]
  - Insomnia [Not Recovered/Not Resolved]
  - Emotional distress [Not Recovered/Not Resolved]
  - Anhedonia [Not Recovered/Not Resolved]
  - Anxiety [Not Recovered/Not Resolved]
  - Pain [Not Recovered/Not Resolved]
  - Blood creatinine increased [Unknown]

NARRATIVE: CASE EVENT DATE: 20120101
